FAERS Safety Report 4908114-4 (Version None)
Quarter: 2006Q1

REPORT INFORMATION
  Report Type: 
  Country: None (occurrence: None)
  Receive Date: 20060113
  Receipt Date: 20050924
  Transmission Date: 20060701
  Serious: No
  Sender: FDA-Public Use
  Company Number: 2005SP003298

PATIENT
  Age: 67 Year
  Sex: Male
  Weight: 78.9259 kg

DRUGS (1)
  1. LUNESTA [Suspect]
     Dosage: 2 MG;HS;ORAL
     Route: 048
     Dates: start: 20050923, end: 20050923

REACTIONS (2)
  - DRUG INEFFECTIVE [None]
  - INSOMNIA [None]
